FAERS Safety Report 6844731-2 (Version None)
Quarter: 2010Q3

REPORT INFORMATION
  Report Type: 
  Country: None (occurrence: None)
  Receive Date: 20100712
  Receipt Date: 20100701
  Transmission Date: 20110219
  Serious: Yes (Death, Hospitalization, Other)
  Sender: FDA-Public Use
  Company Number: 2010AC000470

PATIENT
  Age: 55 Year
  Sex: Male
  Weight: 115.2136 kg

DRUGS (40)
  1. DIGOXIN [Suspect]
     Indication: CARDIAC FAILURE CONGESTIVE
     Dosage: 0.125 MG;QD;PO
     Route: 048
     Dates: start: 20080812
  2. DIGOXIN [Suspect]
     Dosage: 0.25 MG;QD;PO
     Route: 048
     Dates: end: 20080620
  3. DIGOXIN [Suspect]
     Indication: ATRIAL FIBRILLATION
     Dosage: 0.125 MG;QD;PO
     Route: 048
     Dates: start: 20010921, end: 20090101
  4. AMIODARONE HCL [Concomitant]
  5. AMLODIPINE [Concomitant]
  6. BUPROPION [Concomitant]
  7. CARVEDILOL [Concomitant]
  8. OXYCODONE HCL AND ACETAMINOPHEN [Concomitant]
  9. FLEXERIL [Concomitant]
  10. LASIX [Concomitant]
  11. LISINOPRIL [Concomitant]
  12. MIRAPEX [Concomitant]
  13. POTASSIUM CHLORIDE [Concomitant]
  14. SPIRIVA [Concomitant]
  15. VIAGRA [Concomitant]
  16. WARFARIN [Concomitant]
  17. SODIUM [Concomitant]
  18. ZAROXOLYN [Concomitant]
  19. ATACAND [Concomitant]
  20. PERCOCET [Concomitant]
  21. LIDODERM [Concomitant]
  22. COREG [Concomitant]
  23. PRINIVIL [Concomitant]
  24. MELOXICAM [Concomitant]
  25. FUROSEMIDE [Concomitant]
  26. ALPRAZOLAM [Concomitant]
  27. BUPROPION HCL [Concomitant]
  28. CYCLOBENZAPRINE [Concomitant]
  29. ROBAXIN [Concomitant]
  30. CARTIA XT [Concomitant]
  31. SEREVENT [Concomitant]
  32. RHINOCORT [Concomitant]
  33. WELLBUTRIN [Concomitant]
  34. SOMA [Concomitant]
  35. ULTRAM [Concomitant]
  36. POTASSIUM IODIDE LIQUID [Concomitant]
  37. LEVITRA [Concomitant]
  38. MIRAPEX [Concomitant]
  39. NORVASC [Concomitant]
  40. ALDACTONE [Concomitant]

REACTIONS (49)
  - ABDOMINAL PAIN [None]
  - ACCIDENT [None]
  - ANAEMIA [None]
  - ANXIETY [None]
  - ARTHRITIS [None]
  - ASTHENIA [None]
  - BACK PAIN [None]
  - BRADYCARDIA [None]
  - BUNDLE BRANCH BLOCK LEFT [None]
  - CARDIAC ARREST [None]
  - CARDIAC FAILURE CHRONIC [None]
  - CARDIAC MURMUR [None]
  - CARDIOMYOPATHY [None]
  - CHRONIC OBSTRUCTIVE PULMONARY DISEASE [None]
  - COLD SWEAT [None]
  - CONDITION AGGRAVATED [None]
  - CORONARY ARTERY DISEASE [None]
  - DEPRESSION [None]
  - EMOTIONAL DISORDER [None]
  - EPIDIDYMITIS [None]
  - ERECTILE DYSFUNCTION [None]
  - FATIGUE [None]
  - GOITRE [None]
  - GYNAECOMASTIA [None]
  - HAEMATOCHEZIA [None]
  - HYPERLIPIDAEMIA [None]
  - HYPERTENSION [None]
  - HYPOKINESIA [None]
  - INSOMNIA [None]
  - MALAISE [None]
  - MENTAL DISORDER [None]
  - MULTIPLE ALLERGIES [None]
  - MUSCLE SPASMS [None]
  - MUSCULAR WEAKNESS [None]
  - MUSCULOSKELETAL PAIN [None]
  - OBESITY [None]
  - OEDEMA [None]
  - OEDEMA PERIPHERAL [None]
  - OVERDOSE [None]
  - PAIN [None]
  - PAIN IN EXTREMITY [None]
  - PLEURAL EFFUSION [None]
  - REFUSAL OF TREATMENT BY PATIENT [None]
  - RENAL FAILURE ACUTE [None]
  - RHINITIS ALLERGIC [None]
  - SICK SINUS SYNDROME [None]
  - THERAPEUTIC AGENT TOXICITY [None]
  - VISUAL IMPAIRMENT [None]
  - WEIGHT DECREASED [None]
